FAERS Safety Report 5476962-0 (Version None)
Quarter: 2007Q4

REPORT INFORMATION
  Report Type: 
  Country: None (occurrence: None)
  Receive Date: 20071004
  Receipt Date: 20070927
  Transmission Date: 20080405
  Serious: Yes (Death)
  Sender: FDA-Public Use
  Company Number: PK-AVENTIS-200718793GDDC

PATIENT
  Age: 52 Year
  Sex: Male
  Weight: 70 kg

DRUGS (5)
  1. LANTUS [Suspect]
     Route: 058
     Dates: start: 20070705, end: 20070907
  2. PIOGLITAZONE [Concomitant]
     Indication: DIABETES MELLITUS
     Route: 048
     Dates: start: 20070103, end: 20070907
  3. GLYCERINE TRINITRATE [Concomitant]
     Route: 048
     Dates: start: 20060804, end: 20070907
  4. ASPIRIN [Concomitant]
     Route: 048
     Dates: start: 20060804, end: 20070907
  5. LOSARTAN POTASSIUM [Concomitant]
     Indication: HYPERTENSION
     Route: 048
     Dates: start: 20060804, end: 20070907

REACTIONS (4)
  - ACUTE CORONARY SYNDROME [None]
  - CHEST PAIN [None]
  - COLD SWEAT [None]
  - PALPITATIONS [None]
